FAERS Safety Report 5770410-9 (Version None)
Quarter: 2008Q2

REPORT INFORMATION
  Report Type: 
  Country: None (occurrence: None)
  Receive Date: 20080613
  Receipt Date: 20080501
  Transmission Date: 20081010
  Serious: No
  Sender: FDA-Public Use
  Company Number: US-ABBOTT-08P-163-0450065-00

PATIENT
  Sex: Female
  Weight: 53.572 kg

DRUGS (4)
  1. HUMIRA [Suspect]
     Indication: CROHN'S DISEASE
     Route: 058
     Dates: start: 20080301
  2. HUMIRA [Suspect]
     Route: 058
     Dates: start: 20080315, end: 20080315
  3. HUMIRA [Suspect]
     Route: 058
     Dates: start: 20080321, end: 20080321
  4. HUMIRA [Suspect]
     Route: 058
     Dates: start: 20080322, end: 20080322

REACTIONS (7)
  - DEPRESSION [None]
  - EMOTIONAL DISORDER [None]
  - HAEMATOCRIT DECREASED [None]
  - MENORRHAGIA [None]
  - MUSCLE SPASMS [None]
  - NAUSEA [None]
  - POSTNASAL DRIP [None]
